FAERS Safety Report 4553033-9 (Version None)
Quarter: 2005Q1

REPORT INFORMATION
  Report Type: 
  Country: None (occurrence: None)
  Receive Date: 20050113
  Receipt Date: 20041228
  Transmission Date: 20050727
  Serious: Yes (Other)
  Sender: FDA-Public Use
  Company Number: 2004-00907

PATIENT
  Age: 81 Year
  Sex: Female
  Weight: 63.3 kg

DRUGS (10)
  1. VELCADE [Suspect]
     Indication: MULTIPLE MYELOMA
     Dosage: 2.10 MG, IV BOLUS
     Route: 040
     Dates: start: 20040301, end: 20041122
  2. OXYCONTIN [Concomitant]
  3. VITAMIN E [Concomitant]
  4. VITAMIN C (ASCORBIC ACID) [Concomitant]
  5. OCUPRESS [Concomitant]
  6. XALATAN [Concomitant]
  7. SENOKOT [Concomitant]
  8. MEGACE [Concomitant]
  9. AMITRIPTYLINE (AMITRIPTYLINE) [Concomitant]
  10. OXYCODONE (OXYCODONE) [Concomitant]

REACTIONS (17)
  - ANAEMIA [None]
  - AORTIC VALVE INCOMPETENCE [None]
  - CARDIAC FAILURE CONGESTIVE [None]
  - CARDIOMEGALY [None]
  - CONTUSION [None]
  - DILATATION VENTRICULAR [None]
  - DIZZINESS [None]
  - EJECTION FRACTION DECREASED [None]
  - MITRAL VALVE INCOMPETENCE [None]
  - NERVOUSNESS [None]
  - NEUTROPHIL COUNT ABNORMAL [None]
  - ORTHOPNOEA [None]
  - PANIC ATTACK [None]
  - PULMONARY HYPERTENSION [None]
  - THROMBOCYTOPENIA [None]
  - TRICUSPID VALVE INCOMPETENCE [None]
  - WHITE BLOOD CELL COUNT DECREASED [None]
